FAERS Safety Report 24326417 (Version 1)
Quarter: 2024Q3

REPORT INFORMATION
  Report Type: Report from Study
  Country: CA (occurrence: CA)
  Receive Date: 20240917
  Receipt Date: 20240917
  Transmission Date: 20241016
  Serious: Yes (Hospitalization, Other)
  Sender: ABBVIE
  Company Number: CA-ABBVIE-5920020

PATIENT
  Age: 62 Year
  Sex: Female

DRUGS (1)
  1. RINVOQ [Suspect]
     Active Substance: UPADACITINIB
     Indication: Rheumatoid arthritis
     Dosage: FORM STRENGTH: 15 MILLIGRAM
     Route: 048
     Dates: start: 20220613, end: 20240906

REACTIONS (7)
  - Breast swelling [Recovering/Resolving]
  - Wound infection [Recovering/Resolving]
  - Immunodeficiency [Unknown]
  - Breast cyst [Recovering/Resolving]
  - Wound haemorrhage [Recovering/Resolving]
  - Breast abscess [Recovering/Resolving]
  - Memory impairment [Unknown]

NARRATIVE: CASE EVENT DATE: 20240101
